FAERS Safety Report 19309146 (Version 1)
Quarter: 2021Q2

REPORT INFORMATION
  Report Type: Spontaneous
  Country: IT (occurrence: IT)
  Receive Date: 20210526
  Receipt Date: 20210526
  Transmission Date: 20210717
  Serious: Yes (Other)
  Sender: FDA-Public Use
  Company Number: IT-ROCHE-2835842

PATIENT
  Age: 70 Year
  Sex: Male

DRUGS (1)
  1. LUCENTIS [Suspect]
     Active Substance: RANIBIZUMAB
     Indication: DIABETIC RETINAL OEDEMA
     Route: 065
     Dates: start: 20200103, end: 20200306

REACTIONS (2)
  - Visual impairment [Unknown]
  - Macular oedema [Unknown]

NARRATIVE: CASE EVENT DATE: 20210322
